FAERS Safety Report 11373670 (Version 1)
Quarter: 2015Q3

REPORT INFORMATION
  Report Type: Spontaneous
  Country: US (occurrence: None)
  Receive Date: 20150811
  Receipt Date: 20150811
  Transmission Date: 20151125
  Serious: Yes (Life-Threatening, Hospitalization, Other)
  Sender: FDA-Public Use
  Company Number: 2015AJA00027

PATIENT
  Age: 24 Year
  Sex: Female

DRUGS (3)
  1. CARBAMAZEPINE. [Concomitant]
     Active Substance: CARBAMAZEPINE
  2. CARBAMAZEPINE. [Suspect]
     Active Substance: CARBAMAZEPINE
     Indication: SEIZURE
  3. LEVETIRACETAM. [Suspect]
     Active Substance: LEVETIRACETAM
     Indication: EPILEPSY
     Route: 048

REACTIONS (7)
  - Ventricular tachycardia [None]
  - Diabetes insipidus [None]
  - Mental status changes [None]
  - Pneumonia [None]
  - Ventricular extrasystoles [None]
  - Haemodynamic instability [None]
  - Torsade de pointes [None]

NARRATIVE: CASE EVENT DATE: 20150419
